FAERS Safety Report 15278418 (Version 2)
Quarter: 2018Q3

REPORT INFORMATION
  Report Type: Report from Study
  Country: BR (occurrence: BR)
  Receive Date: 20180814
  Receipt Date: 20180822
  Transmission Date: 20181010
  Serious: Yes (Hospitalization, Other)
  Sender: FDA-Public Use
  Company Number: PHHY2018BR072761

PATIENT
  Age: 83 Year
  Sex: Female
  Weight: 53 kg

DRUGS (3)
  1. EXELON PATCH [Suspect]
     Active Substance: RIVASTIGMINE
     Indication: PROPHYLAXIS
     Dosage: 4.6 MG (PATCH 5 CM2), QD
     Route: 062
     Dates: start: 20180612
  2. EXELON PATCH [Suspect]
     Active Substance: RIVASTIGMINE
     Dosage: 9.5 MG, QD PATCH 10 (CM2), QD (STARTED 3 MONTHS AGO)
     Route: 062
  3. LOSARTAN. [Concomitant]
     Active Substance: LOSARTAN
     Indication: HYPERTENSION
     Dosage: 1 DF, QD (MANY YEARS AGO)
     Route: 065

REACTIONS (10)
  - Blood pressure increased [Recovered/Resolved]
  - Diarrhoea [Recovered/Resolved]
  - Product use in unapproved indication [Not Recovered/Not Resolved]
  - Hypertensive crisis [Unknown]
  - Malabsorption [Recovered/Resolved]
  - Weight decreased [Recovered/Resolved]
  - Stress [Unknown]
  - Drug intolerance [Unknown]
  - Malaise [Unknown]
  - Concomitant disease aggravated [Recovered/Resolved]

NARRATIVE: CASE EVENT DATE: 20180807
